FAERS Safety Report 7710213-9 (Version None)
Quarter: 2011Q3

REPORT INFORMATION
  Report Type: 
  Country: None (occurrence: None)
  Receive Date: 20110825
  Receipt Date: 20110824
  Transmission Date: 20111222
  Serious: Yes (Hospitalization, Other)
  Sender: FDA-Public Use
  Company Number: US-PFIZER INC-2011189780

PATIENT
  Sex: Male
  Weight: 86 kg

DRUGS (16)
  1. ADVAIR DISKUS 100/50 [Concomitant]
     Dosage: 250/50 MCG Q. 12 HOURS
     Route: 055
  2. METFORMIN [Concomitant]
     Dosage: 500 MG, 2X/DAY
     Route: 048
  3. COMBIVENT [Concomitant]
     Dosage: 2 PUFFS TWICE A DAY
     Route: 055
  4. LASIX [Concomitant]
     Dosage: 80 MG, 2X/DAY
     Route: 048
  5. ASPIRIN [Concomitant]
     Dosage: 325 MG, DAILY
     Route: 048
  6. LIPITOR [Concomitant]
     Dosage: 40 MG, DAILY
     Route: 048
  7. METOLAZONE [Concomitant]
     Dosage: 5 MG, DAILY
     Route: 048
  8. NOVOLOG [Concomitant]
     Dosage: 5 UNITS WITH MEALS
     Route: 058
  9. COREG [Concomitant]
     Dosage: 12.5 MG, 2X/DAY
     Route: 048
  10. STARLIX [Concomitant]
     Dosage: 120 MG, 3X/DAY
     Route: 048
  11. AMBIEN [Concomitant]
     Dosage: 12.5 MG, AT BEDTIME
     Route: 048
  12. EPLERENONE [Suspect]
     Dosage: 25 MG, QOD
     Route: 048
     Dates: start: 20110624, end: 20110701
  13. LYRICA [Concomitant]
     Dosage: 50 MG, 3X/DAY
     Route: 048
  14. ENALAPRIL [Concomitant]
     Dosage: 2.5 MG, 2X/DAY
     Route: 048
  15. LANTUS [Concomitant]
     Dosage: 35 IU, AT NIGHT
     Route: 058
  16. CYMBALTA [Concomitant]
     Dosage: 60 MG, DAILY
     Route: 048

REACTIONS (8)
  - HAEMATURIA [None]
  - ENTEROCOCCAL INFECTION [None]
  - BLOOD CREATININE INCREASED [None]
  - HYPOGLYCAEMIA [None]
  - URINARY TRACT INFECTION [None]
  - BLOOD SODIUM DECREASED [None]
  - CULTURE URINE POSITIVE [None]
  - SYNCOPE [None]
